FAERS Safety Report 11517480 (Version 2)
Quarter: 2016Q1

REPORT INFORMATION
  Report Type: Spontaneous
  Country: US (occurrence: US)
  Receive Date: 20150917
  Receipt Date: 20160119
  Transmission Date: 20160525
  Serious: Yes (Death)
  Sender: FDA-Public Use
  Company Number: US-B.I. PHARMACEUTICALS,INC./RIDGEFIELD-2015-BI-50337BP

PATIENT
  Age: 68 Year
  Sex: Male

DRUGS (1)
  1. ATROVENT [Suspect]
     Active Substance: IPRATROPIUM BROMIDE
     Indication: PRODUCT USED FOR UNKNOWN INDICATION
     Dosage: 17 MCG
     Route: 055
     Dates: start: 2013

REACTIONS (1)
  - Shock hypoglycaemic [Fatal]

NARRATIVE: CASE EVENT DATE: 20150913
